FAERS Safety Report 6366354-4 (Version None)
Quarter: 2009Q3

REPORT INFORMATION
  Report Type: 
  Country: None (occurrence: None)
  Receive Date: 20090921
  Receipt Date: 20090909
  Transmission Date: 20100115
  Serious: Yes (Life-Threatening, Other)
  Sender: FDA-Public Use
  Company Number: DE-AMGEN-US365324

PATIENT
  Sex: Male
  Weight: 85 kg

DRUGS (3)
  1. ENBREL [Suspect]
     Indication: RHEUMATOID ARTHRITIS
     Route: 058
     Dates: start: 20040101, end: 20090101
  2. CORTISONE [Concomitant]
     Dosage: 10 - 20 MG DAILY
     Route: 048
  3. DICLOFENAC [Concomitant]
     Route: 048

REACTIONS (3)
  - PNEUMONIA [None]
  - PROSTATITIS [None]
  - RENAL DISORDER [None]
